FAERS Safety Report 25058686 (Version 1)
Quarter: 2025Q1

REPORT INFORMATION
  Report Type: Spontaneous
  Country: US (occurrence: US)
  Receive Date: 20250310
  Receipt Date: 20250310
  Transmission Date: 20250409
  Serious: No
  Sender: ALEXION PHARMACEUTICALS
  Company Number: US-AstraZeneca-CH-00818871A

PATIENT

DRUGS (2)
  1. SEROQUEL [Suspect]
     Active Substance: QUETIAPINE FUMARATE
     Indication: Dementia
     Route: 065
  2. SEROQUEL [Suspect]
     Active Substance: QUETIAPINE FUMARATE
     Route: 065

REACTIONS (6)
  - Patient elopement [Unknown]
  - Sleep disorder [Unknown]
  - Abnormal sleep-related event [Unknown]
  - Breath sounds abnormal [Unknown]
  - Sleep apnoea syndrome [Unknown]
  - Product use issue [Unknown]
